FAERS Safety Report 11960760 (Version 1)
Quarter: 2016Q1

REPORT INFORMATION
  Report Type: Report from Study
  Country: US (occurrence: US)
  Receive Date: 20160126
  Receipt Date: 20160126
  Transmission Date: 20160526
  Serious: No
  Sender: FDA-Public Use
  Company Number: US-ABBVIE-15K-163-1361265-00

PATIENT
  Age: 36 Year
  Sex: Female

DRUGS (2)
  1. HUMIRA [Suspect]
     Active Substance: ADALIMUMAB
     Route: 065
     Dates: start: 20150306, end: 20150306
  2. HUMIRA [Suspect]
     Active Substance: ADALIMUMAB
     Indication: ANKYLOSING SPONDYLITIS
     Route: 065
     Dates: start: 20150220, end: 20150220

REACTIONS (7)
  - Lip swelling [Recovered/Resolved]
  - Rash [Recovered/Resolved]
  - Injection site pain [Unknown]
  - Paraesthesia oral [Recovered/Resolved]
  - Eye swelling [Recovered/Resolved]
  - Ocular hyperaemia [Unknown]
  - Injection site pain [Unknown]

NARRATIVE: CASE EVENT DATE: 20150220
